FAERS Safety Report 18762246 (Version 2)
Quarter: 2021Q1

REPORT INFORMATION
  Report Type: Spontaneous
  Country: US (occurrence: US)
  Receive Date: 20210120
  Receipt Date: 20210126
  Transmission Date: 20210419
  Serious: Yes (Other)
  Sender: FDA-Public Use
  Company Number: US-PFIZER INC-2021017177

PATIENT
  Age: 91 Year
  Sex: Female

DRUGS (1)
  1. MANNITOL. [Suspect]
     Active Substance: MANNITOL
     Indication: CHOROIDAL HAEMORRHAGE
     Dosage: 2 DOSES OF 2 G/KG

REACTIONS (3)
  - Acute kidney injury [Recovered/Resolved]
  - Hyperosmolar state [Recovered/Resolved]
  - Hyponatraemia [Recovered/Resolved]
